FAERS Safety Report 5548170-6 (Version None)
Quarter: 2007Q4

REPORT INFORMATION
  Report Type: 
  Country: None (occurrence: None)
  Receive Date: 20071206
  Receipt Date: 20071121
  Transmission Date: 20080405
  Serious: Yes (Other)
  Sender: FDA-Public Use
  Company Number: 17943

PATIENT
  Age: 87 Year
  Sex: Female

DRUGS (5)
  1. VINCRISTINE [Suspect]
     Indication: B-CELL LYMPHOMA
     Dosage: 1 MG/M2 Q3W
  2. DOXORUBICIN HCL [Suspect]
     Dosage: 25 MG/M2 Q3W
  3. PREDNISONE [Suspect]
     Indication: B-CELL LYMPHOMA
     Dosage: 40 MG/M2 Q3W
  4. RITUXIMAB [Suspect]
     Indication: B-CELL LYMPHOMA
     Dosage: 375 MG/M2 Q3W
  5. CYCLOPHOSPHAMIDE [Suspect]
     Indication: B-CELL LYMPHOMA
     Dosage: 400 MG/M2 Q3W

REACTIONS (10)
  - ACUTE HEPATIC FAILURE [None]
  - ARRHYTHMIA [None]
  - BLOOD POTASSIUM DECREASED [None]
  - BLOOD SODIUM DECREASED [None]
  - HYPERTROPHIC CARDIOMYOPATHY [None]
  - ISCHAEMIC HEPATITIS [None]
  - LOSS OF CONSCIOUSNESS [None]
  - PLEURAL EFFUSION [None]
  - PULMONARY OEDEMA [None]
  - RENAL FAILURE ACUTE [None]
